FAERS Safety Report 10268954 (Version 1)
Quarter: 2014Q2

REPORT INFORMATION
  Report Type: Spontaneous
  Country: FR (occurrence: FR)
  Receive Date: 20140630
  Receipt Date: 20140630
  Transmission Date: 20141212
  Serious: Yes (Hospitalization)
  Sender: FDA-Public Use
  Company Number: FR-SA-2014SA080073

PATIENT
  Age: 56 Year
  Sex: Male

DRUGS (6)
  1. RIFADINE [Suspect]
     Indication: PRODUCT USED FOR UNKNOWN INDICATION
     Route: 065
     Dates: start: 20130711
  2. OFLOCET [Suspect]
     Indication: PRODUCT USED FOR UNKNOWN INDICATION
     Route: 065
     Dates: start: 20130707
  3. VANCOMYCIN [Concomitant]
     Dates: start: 20130705
  4. GENTAMICIN [Concomitant]
     Dates: start: 20130705
  5. ORBENIN [Concomitant]
     Dosage: 3GX4 DAILY
     Dates: start: 20130705, end: 20130722
  6. DALACIN [Concomitant]
     Dosage: 900 MGX7
     Dates: start: 20130705

REACTIONS (1)
  - Neutropenia [Not Recovered/Not Resolved]
